FAERS Safety Report 22394593 (Version 1)
Quarter: 2023Q2

REPORT INFORMATION
  Report Type: Spontaneous
  Country: CN (occurrence: CN)
  Receive Date: 20230601
  Receipt Date: 20230601
  Transmission Date: 20230721
  Serious: Yes (Other)
  Sender: FDA-Public Use
  Company Number: None

PATIENT
  Age: 50 Year
  Sex: Female
  Weight: 78 kg

DRUGS (13)
  1. CYCLOPHOSPHAMIDE [Suspect]
     Active Substance: CYCLOPHOSPHAMIDE
     Indication: Neoplasm malignant
     Dosage: 1 G, QD, DILUTED WITH NS 500 ML
     Route: 041
     Dates: start: 20230324, end: 20230324
  2. CYCLOPHOSPHAMIDE [Suspect]
     Active Substance: CYCLOPHOSPHAMIDE
     Indication: Chemotherapy
  3. SODIUM CHLORIDE [Suspect]
     Active Substance: SODIUM CHLORIDE
     Indication: Medication dilution
     Dosage: 500 ML, QD, USED TO DILUTE 1G CYCLOPHOSPHAMIDE
     Route: 041
     Dates: start: 20230324, end: 20230324
  4. SODIUM CHLORIDE [Suspect]
     Active Substance: SODIUM CHLORIDE
     Dosage: 500 ML, QD, USED TO DILUTE 500 MG RITUXIMAB
     Route: 041
     Dates: start: 20230324, end: 20230324
  5. SODIUM CHLORIDE [Suspect]
     Active Substance: SODIUM CHLORIDE
     Dosage: 250 ML, QD, D1, USED TO DILUTE 25 MG EPIRUBICIN HYDROCHLORIDE
     Route: 041
     Dates: start: 20230324, end: 20230324
  6. SODIUM CHLORIDE [Suspect]
     Active Substance: SODIUM CHLORIDE
     Dosage: 250 ML, QD, D2, USED TO DILUTE 30 MG EPIRUBICIN HYDROCHLORIDE
     Route: 041
     Dates: start: 20230325, end: 20230325
  7. SODIUM CHLORIDE [Suspect]
     Active Substance: SODIUM CHLORIDE
     Dosage: 100 ML, QD, USED TO DILUTE 4 MG VINDESINE SULFATE
     Route: 041
     Dates: start: 20230324, end: 20230324
  8. RITUXIMAB [Suspect]
     Active Substance: RITUXIMAB
     Indication: Neoplasm malignant
     Dosage: 500 MG, QD, DILUTED WITH NS 500 ML
     Route: 041
     Dates: start: 20230324, end: 20230324
  9. RITUXIMAB [Suspect]
     Active Substance: RITUXIMAB
     Indication: Chemotherapy
  10. EPIRUBICIN HYDROCHLORIDE [Suspect]
     Active Substance: EPIRUBICIN HYDROCHLORIDE
     Indication: Neoplasm malignant
     Dosage: 25 MG, QD, D1, DILUTED WITH NS 250 ML
     Route: 041
     Dates: start: 20230324, end: 20230324
  11. EPIRUBICIN HYDROCHLORIDE [Suspect]
     Active Substance: EPIRUBICIN HYDROCHLORIDE
     Indication: Chemotherapy
     Dosage: 30 MG, D2, DILUTED WITH 250 ML NS
     Route: 041
     Dates: start: 20230325, end: 20230325
  12. VINDESINE SULFATE [Suspect]
     Active Substance: VINDESINE SULFATE
     Indication: Neoplasm malignant
     Dosage: 4 MG, QD, DILUTED WITH NS 100 ML
     Route: 041
     Dates: start: 20230324, end: 20230324
  13. VINDESINE SULFATE [Suspect]
     Active Substance: VINDESINE SULFATE
     Indication: Chemotherapy

REACTIONS (1)
  - Myelosuppression [Recovering/Resolving]

NARRATIVE: CASE EVENT DATE: 20230411
